FAERS Safety Report 7282433-1 (Version None)
Quarter: 2011Q1

REPORT INFORMATION
  Report Type: 
  Country: None (occurrence: None)
  Receive Date: 20110209
  Receipt Date: 20110202
  Transmission Date: 20110831
  Serious: Yes (Life-Threatening, Hospitalization)
  Sender: FDA-Public Use
  Company Number: HU-BRISTOL-MYERS SQUIBB COMPANY-15527203

PATIENT
  Age: 55 Year
  Sex: Male
  Weight: 77 kg

DRUGS (10)
  1. FLUOROURACIL [Suspect]
     Indication: HEAD AND NECK CANCER
     Dosage: FLUOROURACIL INTRAVENOUS INFUSION RECENT INFUSION ON 08DEC2009
     Route: 042
     Dates: start: 20091117
  2. METHYLPREDNISOLONE [Concomitant]
     Indication: PROPHYLAXIS
     Dosage: 3 TIMES DAILY ON 08DEC09
     Route: 048
     Dates: start: 20091207
  3. CETUXIMAB [Suspect]
     Indication: HEAD AND NECK CANCER
     Dosage: CETUXIMAB INTRAVENOUS INFUSION RECENT INFUSION ON 08DEC2009
     Route: 042
     Dates: start: 20091117
  4. TAXOTERE [Suspect]
     Indication: HEAD AND NECK CANCER
     Dosage: TAXOTERE INTRAVENOUS INFUSION RECENT INFUSION ON 08DEC2009
     Route: 042
     Dates: start: 20091117
  5. ACETYLSALICYLIC ACID [Concomitant]
     Route: 048
     Dates: start: 20051001
  6. CISPLATIN [Suspect]
     Indication: HEAD AND NECK CANCER
     Dosage: RECENT INFUSION ON 08DEC2009
     Route: 042
     Dates: start: 20091117
  7. PENTOXIFYLLINE [Concomitant]
     Indication: CARDIOVASCULAR DISORDER
     Route: 048
     Dates: start: 20051001
  8. CALCIUM DOBESILATE [Concomitant]
     Indication: VASODILATATION
     Route: 048
     Dates: start: 20051001
  9. RANITIDINE [Concomitant]
     Indication: PROPHYLAXIS
     Route: 048
     Dates: start: 20091207, end: 20091208
  10. NAFTIDROFURYL [Concomitant]
     Indication: VASODILATATION
     Route: 048
     Dates: start: 20051001

REACTIONS (1)
  - DUODENAL ULCER HAEMORRHAGE [None]
